FAERS Safety Report 7920277-5 (Version None)
Quarter: 2011Q4

REPORT INFORMATION
  Report Type: 
  Country: None (occurrence: None)
  Receive Date: 20111117
  Receipt Date: 20111111
  Transmission Date: 20120403
  Serious: Yes (Hospitalization)
  Sender: FDA-Public Use
  Company Number: JP-ROCHE-1013516

PATIENT
  Sex: Male

DRUGS (1)
  1. ACTEMRA [Suspect]
     Indication: JUVENILE ARTHRITIS
     Route: 041
     Dates: start: 20110707, end: 20110826

REACTIONS (5)
  - PRURITUS GENERALISED [None]
  - VOMITING [None]
  - BLOOD PRESSURE DECREASED [None]
  - ERYTHEMA [None]
  - HEADACHE [None]
